FAERS Safety Report 16828579 (Version 2)
Quarter: 2019Q3

REPORT INFORMATION
  Report Type: Spontaneous
  Country: US (occurrence: US)
  Receive Date: 20190919
  Receipt Date: 20190924
  Transmission Date: 20191005
  Serious: No
  Sender: FDA-Public Use
  Company Number: US-BAYER-2019-170822

PATIENT
  Age: 27 Year
  Sex: Male

DRUGS (3)
  1. KOGENATE FS [Suspect]
     Active Substance: ANTIHEMOPHILIC FACTOR, HUMAN RECOMBINANT
     Dosage: 4IW, UNKNOWN WHEN PATIENT FIRST STARTED KOGENATE
  2. KOGENATE FS [Suspect]
     Active Substance: ANTIHEMOPHILIC FACTOR, HUMAN RECOMBINANT
     Dosage: THERE WERE NO SPECIFIC INFORMATION REGARDING THE RECALLED KOGENATE
  3. KOGENATE FS [Suspect]
     Active Substance: ANTIHEMOPHILIC FACTOR, HUMAN RECOMBINANT
     Dosage: PRN, UNKNOWN WHEN PATIENT FIRST STARTED KOGENATE

REACTIONS (2)
  - Recalled product [None]
  - Recalled product administered [None]

NARRATIVE: CASE EVENT DATE: 2019
